FAERS Safety Report 10075576 (Version 1)
Quarter: 2014Q2

REPORT INFORMATION
  Report Type: Spontaneous
  Country: US (occurrence: US)
  Receive Date: 20140414
  Receipt Date: 20140414
  Transmission Date: 20141212
  Serious: Yes (Other)
  Sender: FDA-Public Use
  Company Number: US-JNJFOC-20140403532

PATIENT
  Sex: Female

DRUGS (1)
  1. RISPERDAL [Suspect]
     Indication: PRODUCT USED FOR UNKNOWN INDICATION
     Route: 048

REACTIONS (6)
  - Suicidal ideation [Unknown]
  - Panic attack [Unknown]
  - Drug dispensing error [Not Recovered/Not Resolved]
  - Accidental exposure to product [Recovered/Resolved]
  - Anxiety [Unknown]
  - Lethargy [Unknown]
